FAERS Safety Report 9127186 (Version 1)
Quarter: 2013Q1

REPORT INFORMATION
  Report Type: Spontaneous
  Country: US (occurrence: US)
  Receive Date: 20130228
  Receipt Date: 20130228
  Transmission Date: 20140127
  Serious: No
  Sender: FDA-Public Use
  Company Number: US-GLAXOSMITHKLINE-A0959918A

PATIENT
  Age: 24 Year
  Sex: Male

DRUGS (2)
  1. LAMOTRIGINE [Suspect]
     Indication: AFFECTIVE DISORDER
     Dosage: 50MG TWICE PER DAY
     Route: 048
     Dates: start: 2008
  2. LAMICTAL [Suspect]
     Indication: AFFECTIVE DISORDER
     Dosage: 100MG PER DAY
     Route: 048

REACTIONS (5)
  - Rash [Not Recovered/Not Resolved]
  - Rash macular [Unknown]
  - Rash pustular [Unknown]
  - Pruritus [Unknown]
  - Somnolence [Unknown]
